FAERS Safety Report 5955551-5 (Version None)
Quarter: 2008Q4

REPORT INFORMATION
  Report Type: 
  Country: None (occurrence: None)
  Receive Date: 20081112
  Receipt Date: 20081028
  Transmission Date: 20090506
  Serious: Yes (Hospitalization)
  Sender: FDA-Public Use
  Company Number: 2008S1019499

PATIENT
  Age: 78 Year
  Sex: Female

DRUGS (7)
  1. DOXAZOSIN (DOXAZOSIN) [Suspect]
     Indication: DRUG USE FOR UNKNOWN INDICATION
     Dosage: 8 MG; ORAL
     Route: 048
  2. PERINDOPRIL ERBUMINE [Suspect]
     Indication: DRUG USE FOR UNKNOWN INDICATION
     Dosage: 8 MG; ORAL
     Route: 048
  3. ASPIRIN [Concomitant]
  4. CODEINE SUL TAB [Concomitant]
  5. DIPYRIDAMOLE [Concomitant]
  6. MIXTARD HUMAN 70/30 [Concomitant]
  7. ACETAMINOPHEN [Concomitant]

REACTIONS (1)
  - ATRIAL FIBRILLATION [None]
